FAERS Safety Report 11349850 (Version 2)
Quarter: 2019Q4

REPORT INFORMATION
  Report Type: Report from Study
  Country: US (occurrence: US)
  Receive Date: 20150807
  Receipt Date: 20191115
  Transmission Date: 20200122
  Serious: Yes (Hospitalization)
  Sender: FDA-Public Use
  Company Number: US-ROCHE-1617800

PATIENT
  Age: 75 Year
  Sex: Female
  Weight: 46.3 kg

DRUGS (7)
  1. BEVACIZUMAB. [Concomitant]
     Active Substance: BEVACIZUMAB
     Route: 065
  2. OXALIPLATIN. [Concomitant]
     Active Substance: OXALIPLATIN
     Route: 065
     Dates: start: 201408, end: 201505
  3. CETUXIMAB. [Suspect]
     Active Substance: CETUXIMAB
     Indication: COLORECTAL CANCER METASTATIC
     Route: 042
     Dates: start: 20150615, end: 20150721
  4. VEMURAFENIB. [Suspect]
     Active Substance: VEMURAFENIB
     Indication: COLORECTAL CANCER METASTATIC
     Route: 048
     Dates: start: 20150615, end: 20150729
  5. 5-FLUOROURACIL [FLUOROURACIL] [Concomitant]
     Active Substance: FLUOROURACIL
     Route: 065
     Dates: start: 201408, end: 201505
  6. IRINOTECAN [Suspect]
     Active Substance: IRINOTECAN
     Indication: COLORECTAL CANCER METASTATIC
     Route: 042
     Dates: start: 20150615, end: 20150721
  7. LEUCOVORIN CALCIUM. [Concomitant]
     Active Substance: LEUCOVORIN CALCIUM
     Route: 065
     Dates: start: 201408, end: 201505

REACTIONS (1)
  - Dehydration [Recovering/Resolving]

NARRATIVE: CASE EVENT DATE: 20150730
